FAERS Safety Report 7324785-X (Version None)
Quarter: 2011Q1

REPORT INFORMATION
  Report Type: 
  Country: None (occurrence: None)
  Receive Date: 20110301
  Receipt Date: 20110223
  Transmission Date: 20110831
  Serious: Yes (Other)
  Sender: FDA-Public Use
  Company Number: US-PFIZER INC-2011040251

PATIENT
  Sex: Female

DRUGS (1)
  1. PREPARATION H [Suspect]
     Indication: HAEMORRHAGE
     Dosage: UNK

REACTIONS (4)
  - PAIN [None]
  - CYST [None]
  - ERYTHEMA [None]
  - INJECTION SITE CYST [None]
